FAERS Safety Report 6203018-1 (Version None)
Quarter: 2009Q2

REPORT INFORMATION
  Report Type: 
  Country: None (occurrence: None)
  Receive Date: 20090514
  Receipt Date: 20090429
  Transmission Date: 20091009
  Serious: Yes (Other)
  Sender: FDA-Public Use
  Company Number: MESA-2009-010

PATIENT
  Age: 40 Year
  Sex: Male

DRUGS (3)
  1. MESALAMINE [Suspect]
     Indication: COLITIS ULCERATIVE
  2. AZATHIOPRINE [Suspect]
     Indication: COLITIS ULCERATIVE
  3. CORTICOSTEROIDS. [Suspect]
     Indication: COLITIS ULCERATIVE

REACTIONS (1)
  - ACUTE FEBRILE NEUTROPHILIC DERMATOSIS [None]
